FAERS Safety Report 7883868-6 (Version None)
Quarter: 2011Q4

REPORT INFORMATION
  Report Type: 
  Country: None (occurrence: None)
  Receive Date: 20111031
  Receipt Date: 20111018
  Transmission Date: 20120403
  Serious: Yes (Death)
  Sender: FDA-Public Use
  Company Number: JP-ACCORD-011101

PATIENT
  Age: 72 Year
  Sex: Female

DRUGS (2)
  1. TACROLIMUS [Suspect]
     Indication: RHEUMATOID ARTHRITIS
     Dosage: 1.50-MG-1.0DAYS
  2. PREDNISOLONE [Suspect]
     Indication: RHEUMATOID ARTHRITIS
     Dosage: 0.50-MG-1.0DAYS

REACTIONS (2)
  - OFF LABEL USE [None]
  - LUNG DISORDER [None]
